APPROVED DRUG PRODUCT: FENOFIBRATE (MICRONIZED)
Active Ingredient: FENOFIBRATE
Strength: 67MG
Dosage Form/Route: CAPSULE;ORAL
Application: A207378 | Product #001
Applicant: INVAGEN PHARMACEUTICALS INC
Approved: Mar 28, 2017 | RLD: No | RS: No | Type: DISCN